FAERS Safety Report 18481749 (Version 1)
Quarter: 2020Q4

REPORT INFORMATION
  Report Type: Spontaneous
  Country: ES (occurrence: ES)
  Receive Date: 20201109
  Receipt Date: 20201109
  Transmission Date: 20210114
  Serious: Yes (Hospitalization)
  Sender: FDA-Public Use
  Company Number: ES-TEVA-2020-ES-1845195

PATIENT
  Age: 61 Year
  Sex: Female

DRUGS (2)
  1. METFORMINA (1359A) [Concomitant]
     Active Substance: METFORMIN HYDROCHLORIDE
     Route: 048
     Dates: start: 202009, end: 20200925
  2. ATORVASTATINA (7400A) [Suspect]
     Active Substance: ATORVASTATIN
     Route: 048
     Dates: start: 202009, end: 20200925

REACTIONS (3)
  - Vomiting [Recovered/Resolved]
  - Wrong dose [Recovered/Resolved]
  - Hyponatraemia [Recovered/Resolved]

NARRATIVE: CASE EVENT DATE: 20200925
